FAERS Safety Report 23540245 (Version 2)
Quarter: 2024Q2

REPORT INFORMATION
  Report Type: Spontaneous
  Country: US (occurrence: US)
  Receive Date: 20240219
  Receipt Date: 20240517
  Transmission Date: 20240716
  Serious: No
  Sender: FDA-Public Use
  Company Number: US-Stemline Therapeutics, Inc.-2023ST004498

PATIENT
  Age: 69 Year
  Sex: Female

DRUGS (1)
  1. ORSERDU [Suspect]
     Active Substance: ELACESTRANT
     Indication: Product used for unknown indication
     Dosage: 345 MG ONCE A DAY.
     Route: 048
     Dates: start: 20230906, end: 20240227

REACTIONS (15)
  - Sinusitis [Not Recovered/Not Resolved]
  - Tinnitus [Unknown]
  - Flatulence [Not Recovered/Not Resolved]
  - Product dose omission in error [Unknown]
  - Product availability issue [Not Recovered/Not Resolved]
  - Stress [Unknown]
  - Middle insomnia [Unknown]
  - Discomfort [Unknown]
  - Hypersensitivity [Unknown]
  - Dyskinesia [Unknown]
  - Illness [Unknown]
  - Blood cholesterol increased [Unknown]
  - Pain in extremity [Unknown]
  - Arthralgia [Unknown]
  - Insomnia [Unknown]

NARRATIVE: CASE EVENT DATE: 20231101
